FAERS Safety Report 4388557-0 (Version None)
Quarter: 2004Q2

REPORT INFORMATION
  Report Type: 
  Country: None (occurrence: None)
  Receive Date: 20040624
  Receipt Date: 20040609
  Transmission Date: 20050107
  Serious: Yes (Other)
  Sender: FDA-Public Use
  Company Number: 601192

PATIENT
  Age: 66 Year
  Sex: Male

DRUGS (5)
  1. GAMMAGARD S/D [Suspect]
     Indication: NEUROPATHY
     Dosage: 50 GM; Q2W; INTRAVENOUS
     Route: 042
     Dates: start: 20031219, end: 20031219
  2. PLAVIX [Concomitant]
  3. ZOCOR [Concomitant]
  4. ASPIRIN [Concomitant]
  5. FLUOXETINE [Concomitant]

REACTIONS (4)
  - APHASIA [None]
  - CEREBRAL INFARCTION [None]
  - CEREBROVASCULAR ACCIDENT [None]
  - SCOTOMA [None]
